FAERS Safety Report 12414719 (Version 2)
Quarter: 2016Q3

REPORT INFORMATION
  Report Type: Spontaneous
  Country: GR (occurrence: GR)
  Receive Date: 20160529
  Receipt Date: 20160930
  Transmission Date: 20161109
  Serious: Yes (Death, Other)
  Sender: FDA-Public Use
  Company Number: GR-009507513-1605GRC013029

PATIENT
  Age: 85 Year
  Sex: Male
  Weight: 90 kg

DRUGS (1)
  1. KEYTRUDA [Suspect]
     Active Substance: PEMBROLIZUMAB
     Indication: MESOTHELIOMA MALIGNANT
     Dosage: 180 MG, Q.21 DAYS (4 TREATMENT CYCLES)
     Route: 042
     Dates: start: 20160302, end: 20160505

REACTIONS (3)
  - Off label use [Unknown]
  - Respiratory failure [Fatal]
  - Malignant neoplasm progression [Not Recovered/Not Resolved]

NARRATIVE: CASE EVENT DATE: 2016
